FAERS Safety Report 6318039-8 (Version None)
Quarter: 2009Q3

REPORT INFORMATION
  Report Type: 
  Country: None (occurrence: None)
  Receive Date: 20090821
  Receipt Date: 20090809
  Transmission Date: 20100115
  Serious: Yes (Hospitalization, Other)
  Sender: FDA-Public Use
  Company Number: US-PFIZER INC-2009253241

PATIENT
  Sex: Female

DRUGS (1)
  1. LYRICA [Suspect]
     Dosage: UNK
     Dates: start: 20080101

REACTIONS (5)
  - LOCALISED OEDEMA [None]
  - NEUROPATHY PERIPHERAL [None]
  - OEDEMA MOUTH [None]
  - WHEEZING [None]
  - WOUND [None]
